FAERS Safety Report 19458232 (Version 4)
Quarter: 2024Q1

REPORT INFORMATION
  Report Type: Report from Study
  Country: CA (occurrence: CA)
  Receive Date: 20210624
  Receipt Date: 20240328
  Transmission Date: 20240410
  Serious: Yes (Hospitalization, Other)
  Sender: FDA-Public Use
  Company Number: NVSC2021CA112221

PATIENT
  Age: 79 Year
  Sex: Male

DRUGS (6)
  1. ELTROMBOPAG OLAMINE [Suspect]
     Active Substance: ELTROMBOPAG OLAMINE
     Indication: Immune thrombocytopenia
     Dosage: 50 MG, QOD
     Route: 048
  2. ELTROMBOPAG OLAMINE [Suspect]
     Active Substance: ELTROMBOPAG OLAMINE
     Dosage: 25 MG, QD
     Route: 048
  3. ELTROMBOPAG OLAMINE [Suspect]
     Active Substance: ELTROMBOPAG OLAMINE
     Dosage: 25 MG, OTHER (ONCE A DAY 3 TIMES A WEEK)
     Route: 048
     Dates: start: 20210505
  4. ELTROMBOPAG OLAMINE [Suspect]
     Active Substance: ELTROMBOPAG OLAMINE
     Dosage: 25 MG, TIW (3 TIMES A WEEK, EVERY MONDAY, WEDNESDAY, FRIDAY)
     Route: 048
  5. ELTROMBOPAG OLAMINE [Suspect]
     Active Substance: ELTROMBOPAG OLAMINE
     Dosage: 25 MG, QD (2 DAYS PER WEEK)
     Route: 048
  6. PREDNISONE [Concomitant]
     Active Substance: PREDNISONE
     Indication: Product used for unknown indication
     Dosage: UNK
     Route: 065
     Dates: end: 20210512

REACTIONS (14)
  - Atrial fibrillation [Unknown]
  - Blood urine present [Unknown]
  - Depression [Unknown]
  - Pain in extremity [Unknown]
  - Peripheral swelling [Unknown]
  - Aggression [Recovered/Resolved]
  - Arthralgia [Recovering/Resolving]
  - Mobility decreased [Unknown]
  - Gait inability [Unknown]
  - Vision blurred [Recovering/Resolving]
  - General physical health deterioration [Recovering/Resolving]
  - Fatigue [Recovering/Resolving]
  - Platelet count increased [Recovering/Resolving]
  - Off label use [Unknown]
